FAERS Safety Report 11308668 (Version 3)
Quarter: 2016Q1

REPORT INFORMATION
  Report Type: Spontaneous
  Country: US (occurrence: US)
  Receive Date: 20150724
  Receipt Date: 20160316
  Transmission Date: 20160525
  Serious: Yes (Other)
  Sender: FDA-Public Use
  Company Number: US-BAYER-2015-386470

PATIENT
  Age: 22 Year
  Sex: Female
  Weight: 76.87 kg

DRUGS (1)
  1. MIRENA [Suspect]
     Active Substance: LEVONORGESTREL
     Indication: CONTRACEPTION
     Dosage: 20 MCG/24HR, CONT
     Route: 015
     Dates: start: 20140709, end: 20150722

REACTIONS (4)
  - Drug ineffective [None]
  - Pregnancy with contraceptive device [None]
  - Polyhydramnios [None]
  - Gestational hypertension [None]

NARRATIVE: CASE EVENT DATE: 20150721
